FAERS Safety Report 7078875-X (Version None)
Quarter: 2010Q4

REPORT INFORMATION
  Report Type: 
  Country: None (occurrence: None)
  Receive Date: 20101021
  Receipt Date: 20101006
  Transmission Date: 20110411
  Serious: Yes (Hospitalization, Other)
  Sender: FDA-Public Use
  Company Number: 019115

PATIENT
  Sex: Female
  Weight: 80.1 kg

DRUGS (6)
  1. CERTOLIZUMAB PEGOL (CERTOLIZUMAB PEGOL) [Suspect]
     Indication: RHEUMATOID ARTHRITIS
     Dosage: (400 MG 1X/2 WEEKS, STUDY: CDP870-27 SUBCUTANEOUS) ;  (400 MG 1X/2 WEEKS SUBCUTANEOUS)
     Route: 058
     Dates: start: 20050823, end: 20060808
  2. CERTOLIZUMAB PEGOL (CERTOLIZUMAB PEGOL) [Suspect]
     Indication: RHEUMATOID ARTHRITIS
     Dosage: (400 MG 1X/2 WEEKS, STUDY: CDP870-27 SUBCUTANEOUS) ;  (400 MG 1X/2 WEEKS SUBCUTANEOUS)
     Route: 058
     Dates: start: 20060822
  3. METHOTREXATE [Concomitant]
  4. FOLIC ACID [Concomitant]
  5. PREDNISONE [Concomitant]
  6. PARACETAMOL [Concomitant]

REACTIONS (10)
  - BACILLUS TEST POSITIVE [None]
  - BLOOD GLUCOSE INCREASED [None]
  - ESCHERICHIA BACTERAEMIA [None]
  - HEADACHE [None]
  - INFLUENZA [None]
  - LYMPHOCYTE PERCENTAGE DECREASED [None]
  - MONOCYTE PERCENTAGE DECREASED [None]
  - MYALGIA [None]
  - PYELONEPHRITIS ACUTE [None]
  - THROMBOSIS [None]
